FAERS Safety Report 25068023 (Version 1)
Quarter: 2025Q1

REPORT INFORMATION
  Report Type: Spontaneous
  Country: US (occurrence: US)
  Receive Date: 20250312
  Receipt Date: 20250312
  Transmission Date: 20250408
  Serious: No
  Sender: MYLAN
  Company Number: US-MYLANLABS-2025M1018192

PATIENT
  Age: 87 Year
  Sex: Male
  Weight: 79.4 kg

DRUGS (1)
  1. GABAPENTIN [Suspect]
     Active Substance: GABAPENTIN
     Indication: Neuropathy peripheral
     Dosage: UNK, PM (1-3 TABLETS, NIGHTLY)

REACTIONS (1)
  - Off label use [Unknown]
